FAERS Safety Report 7681789-5 (Version None)
Quarter: 2011Q3

REPORT INFORMATION
  Report Type: 
  Country: None (occurrence: None)
  Receive Date: 20110812
  Receipt Date: 20110715
  Transmission Date: 20111222
  Serious: Yes (Hospitalization, Other)
  Sender: FDA-Public Use
  Company Number: US-ASTRAZENECA-2011SE28597

PATIENT
  Age: 72 Year
  Sex: Female
  Weight: 94.8 kg

DRUGS (5)
  1. SEROQUEL XR [Suspect]
     Route: 048
  2. CRESTOR [Suspect]
     Dosage: 40 MG
     Route: 048
  3. CRESTOR [Suspect]
     Route: 048
  4. NEXIUM [Suspect]
     Route: 048
  5. SEROQUEL XR [Suspect]
     Indication: DEPRESSION
     Route: 048

REACTIONS (8)
  - WEIGHT INCREASED [None]
  - STRESS CARDIOMYOPATHY [None]
  - CEREBROVASCULAR ACCIDENT [None]
  - SOMNOLENCE [None]
  - MYOCARDIAL INFARCTION [None]
  - CARDIOMYOPATHY [None]
  - LETHARGY [None]
  - INCORRECT DOSE ADMINISTERED [None]
